FAERS Safety Report 10662697 (Version 7)
Quarter: 2017Q3

REPORT INFORMATION
  Report Type: Spontaneous
  Country: US (occurrence: US)
  Receive Date: 20141218
  Receipt Date: 20170905
  Transmission Date: 20171127
  Serious: Yes (Hospitalization, Other)
  Sender: FDA-Public Use
  Company Number: US-PFIZER INC-2014321102

PATIENT
  Age: 54 Year
  Sex: Female
  Weight: 56 kg

DRUGS (20)
  1. VIAGRA [Suspect]
     Active Substance: SILDENAFIL CITRATE
     Indication: RAYNAUD^S PHENOMENON
  2. REVATIO [Suspect]
     Active Substance: SILDENAFIL CITRATE
     Indication: SCLERODERMA
     Dosage: 20 MG, 3X/DAY
     Route: 048
     Dates: start: 20121104
  3. REVATIO [Suspect]
     Active Substance: SILDENAFIL CITRATE
     Indication: RAYNAUD^S PHENOMENON
     Dosage: 20 MG, 3X/DAY IN THE MORNING, AFTERNOON AND EVENING
     Dates: start: 201401
  4. REVATIO [Suspect]
     Active Substance: SILDENAFIL CITRATE
     Indication: INFECTED SKIN ULCER
  5. DEXLANSOPRAZOLE [Concomitant]
     Active Substance: DEXLANSOPRAZOLE
     Indication: OESOPHAGEAL DISORDER
     Dosage: 60 MG, 1X/DAY
  6. CYMBALTA [Concomitant]
     Active Substance: DULOXETINE HYDROCHLORIDE
     Indication: PAIN IN EXTREMITY
     Dosage: UNK
     Dates: start: 201412
  7. LEVOXYL [Concomitant]
     Active Substance: LEVOTHYROXINE SODIUM
     Dosage: UNK
  8. REVATIO [Suspect]
     Active Substance: SILDENAFIL CITRATE
     Indication: POOR PERIPHERAL CIRCULATION
     Dosage: 60 MG, 3X/DAY (20 MG 3 IN AM, 3 IN AFTERNOON, 3 IN PM)
     Route: 048
     Dates: start: 201501
  9. AMBIEN [Concomitant]
     Active Substance: ZOLPIDEM TARTRATE
     Indication: SLEEP DISORDER
     Dosage: 0.5 MG, DAILY AT NIGHT
     Dates: start: 2007
  10. REVATIO [Suspect]
     Active Substance: SILDENAFIL CITRATE
     Indication: PROPHYLAXIS
  11. GABAPENTINE [Concomitant]
     Active Substance: GABAPENTIN
     Indication: NEURALGIA
     Dosage: 300 MG, 3X/DAY
     Dates: end: 201412
  12. REVATIO [Suspect]
     Active Substance: SILDENAFIL CITRATE
     Indication: SCLERODERMA ASSOCIATED DIGITAL ULCER
  13. VIAGRA [Suspect]
     Active Substance: SILDENAFIL CITRATE
     Indication: SCLERODERMA
     Dosage: 50 MG, 3X/DAY
     Dates: start: 2007, end: 201412
  14. CYMBALTA [Concomitant]
     Active Substance: DULOXETINE HYDROCHLORIDE
     Indication: POOR PERIPHERAL CIRCULATION
  15. NIFEDICAL XL [Concomitant]
     Active Substance: NIFEDIPINE
     Dosage: UNK
     Dates: start: 2007
  16. DEXILANT [Concomitant]
     Active Substance: DEXLANSOPRAZOLE
     Indication: OESOPHAGEAL DISORDER
     Dosage: 60 MG, 1X/DAY
     Dates: start: 2007
  17. SYNTHROID [Concomitant]
     Active Substance: LEVOTHYROXINE SODIUM
     Indication: THYROID DISORDER
     Dosage: 0.88 UG, 1X/DAY
     Dates: start: 2002
  18. NIFEDIPINE. [Concomitant]
     Active Substance: NIFEDIPINE
     Indication: PERIPHERAL ARTERIAL OCCLUSIVE DISEASE
     Dosage: 60 MG, 2X/DAY
  19. ATORVASTATIN CALCIUM. [Concomitant]
     Active Substance: ATORVASTATIN CALCIUM
     Indication: ULCER
     Dosage: 40 MG, 1X/DAY
     Dates: start: 2003
  20. ATORVASTATIN CALCIUM. [Concomitant]
     Active Substance: ATORVASTATIN CALCIUM
     Indication: RAYNAUD^S PHENOMENON

REACTIONS (10)
  - Pain in extremity [Not Recovered/Not Resolved]
  - Condition aggravated [Not Recovered/Not Resolved]
  - Pain [Not Recovered/Not Resolved]
  - Scab [Not Recovered/Not Resolved]
  - Product use in unapproved indication [Not Recovered/Not Resolved]
  - Neoplasm malignant [Recovered/Resolved]
  - Poor peripheral circulation [Not Recovered/Not Resolved]
  - Skin ulcer [Not Recovered/Not Resolved]
  - Skin disorder [Recovered/Resolved]
  - Mass [Recovered/Resolved]

NARRATIVE: CASE EVENT DATE: 2007
